FAERS Safety Report 5572802-X (Version None)
Quarter: 2007Q4

REPORT INFORMATION
  Report Type: 
  Country: None (occurrence: None)
  Receive Date: 20071223
  Receipt Date: 20071217
  Transmission Date: 20080405
  Serious: Yes (Other)
  Sender: FDA-Public Use
  Company Number: PHBS2007JP15151

PATIENT
  Age: 62 Year
  Sex: Male
  Weight: 60 kg

DRUGS (4)
  1. COMTAN [Suspect]
     Indication: PARKINSON'S DISEASE
     Dosage: 300MG/D
     Route: 048
     Dates: start: 20070529, end: 20070530
  2. DOMIN [Concomitant]
     Indication: PARKINSON'S DISEASE
     Dosage: 2.4 MG/D
     Route: 048
     Dates: start: 20061010
  3. MYSLEE [Concomitant]
     Indication: INSOMNIA
     Dosage: 5 MG/D
     Route: 048
     Dates: start: 20070202
  4. MADOPAR [Concomitant]
     Indication: PARKINSON'S DISEASE
     Dosage: 300 MG/D
     Route: 048
     Dates: start: 20040407

REACTIONS (4)
  - BLOOD PRESSURE INCREASED [None]
  - CHILLS [None]
  - MUSCULOSKELETAL STIFFNESS [None]
  - TREMOR [None]
